FAERS Safety Report 25853893 (Version 2)
Quarter: 2025Q4

REPORT INFORMATION
  Report Type: Spontaneous
  Country: RU (occurrence: RU)
  Receive Date: 20250926
  Receipt Date: 20251001
  Transmission Date: 20260117
  Serious: Yes (Other)
  Sender: ELI LILLY AND COMPANY
  Company Number: RU-ELI_LILLY_AND_COMPANY-RU202509021261

PATIENT
  Age: 44 Year
  Sex: Male

DRUGS (2)
  1. CYMBALTA [Suspect]
     Active Substance: DULOXETINE HYDROCHLORIDE
     Indication: Product used for unknown indication
     Dosage: 30 MG, SINGLE (ONE TIME)
     Route: 065
  2. CYMBALTA [Suspect]
     Active Substance: DULOXETINE HYDROCHLORIDE
     Dosage: 30 MG, SINGLE (ONE TIME)
     Route: 065

REACTIONS (8)
  - Counterfeit product administered [Unknown]
  - Loss of consciousness [Unknown]
  - Gastrointestinal disorder [Unknown]
  - Eye pain [Unknown]
  - Nausea [Unknown]
  - Vomiting [Unknown]
  - Asthenia [Unknown]
  - Prescription drug used without a prescription [Unknown]
